FAERS Safety Report 21093738 (Version 1)
Quarter: 2022Q3

REPORT INFORMATION
  Report Type: Spontaneous
  Country: US (occurrence: None)
  Receive Date: 20220715
  Receipt Date: 20220715
  Transmission Date: 20221026
  Serious: Yes (Disabling, Other)
  Sender: FDA-Public Use
  Company Number: None

PATIENT
  Age: 35 Year
  Sex: Male
  Weight: 58.5 kg

DRUGS (1)
  1. TETRAHYDROCANNABINOL UNSPECIFIED\HERBALS [Suspect]
     Active Substance: HERBALS\TETRAHYDROCANNABINOL UNSPECIFIED
     Indication: Sleep disorder

REACTIONS (4)
  - Nerve injury [None]
  - Heart rate increased [None]
  - Disturbance in attention [None]
  - Sleep disorder [None]

NARRATIVE: CASE EVENT DATE: 20220619
